FAERS Safety Report 9108849 (Version 2)
Quarter: 2013Q1

REPORT INFORMATION
  Report Type: Report from Study
  Country: US (occurrence: US)
  Receive Date: 20130222
  Receipt Date: 20130227
  Transmission Date: 20140127
  Serious: Yes (Hospitalization)
  Sender: FDA-Public Use
  Company Number: US-VERTEX PHARMACEUTICALS INC.-2013-002469

PATIENT
  Sex: Female

DRUGS (14)
  1. VX-770 [Suspect]
     Indication: CYSTIC FIBROSIS
     Dosage: 150 MG, BID
     Route: 048
     Dates: start: 20120512
  2. TOBI [Concomitant]
  3. DOXYCYCLINE [Concomitant]
  4. HYPERTONIC SALINE SOLUTION [Concomitant]
  5. FLONASE [Concomitant]
  6. ADVAIR [Concomitant]
  7. AZITHROMYCIN [Concomitant]
  8. VITAMINS [Concomitant]
  9. ALBUTEROL [Concomitant]
  10. PULMOZYME [Concomitant]
  11. PANTOPRAZOLE [Concomitant]
  12. URSODIOL [Concomitant]
  13. CREON [Concomitant]
  14. VITAMIN D [Concomitant]

REACTIONS (2)
  - Staphylococcal infection [Recovered/Resolved]
  - Pseudomonas infection [Recovered/Resolved]
